FAERS Safety Report 7807958-9 (Version None)
Quarter: 2011Q4

REPORT INFORMATION
  Report Type: 
  Country: None (occurrence: None)
  Receive Date: 20111011
  Receipt Date: 20111011
  Transmission Date: 20120403
  Serious: Yes (Other)
  Sender: FDA-Public Use
  Company Number: None

PATIENT
  Age: 63 Year
  Sex: Female
  Weight: 68.946 kg

DRUGS (1)
  1. CYMBALTA [Suspect]
     Indication: NEUROPATHY PERIPHERAL
     Dosage: 60 MG CPEP
     Route: 002

REACTIONS (9)
  - NAUSEA [None]
  - HYPOTENSION [None]
  - DIZZINESS [None]
  - DIARRHOEA [None]
  - CLUMSINESS [None]
  - HEADACHE [None]
  - DRUG WITHDRAWAL SYNDROME [None]
  - HOT FLUSH [None]
  - VOMITING [None]
